FAERS Safety Report 9034489 (Version 1)
Quarter: 2013Q1

REPORT INFORMATION
  Report Type: Spontaneous
  Country: US (occurrence: None)
  Receive Date: 20130116
  Receipt Date: 20130116
  Transmission Date: 20140127
  Serious: No
  Sender: FDA-Public Use
  Company Number: None

PATIENT
  Age: 53 Year
  Sex: Female

DRUGS (1)
  1. COPAXONE [Suspect]
     Indication: MULTIPLE SCLEROSIS
     Dates: start: 2007, end: 20130111

REACTIONS (7)
  - Drug hypersensitivity [None]
  - Panic attack [None]
  - Muscle spasms [None]
  - Pharyngeal oedema [None]
  - Eye swelling [None]
  - Dyspnoea [None]
  - Flushing [None]
